FAERS Safety Report 4732501-0 (Version None)
Quarter: 2005Q3

REPORT INFORMATION
  Report Type: 
  Country: None (occurrence: None)
  Receive Date: 20050803
  Receipt Date: 20050728
  Transmission Date: 20060218
  Serious: Yes (Other)
  Sender: FDA-Public Use
  Company Number: US-GLAXOSMITHKLINE-A0568108A

PATIENT
  Sex: Female

DRUGS (9)
  1. BACTROBAN [Suspect]
     Indication: NASAL DISORDER
     Route: 045
  2. MUPIROCIN [Suspect]
     Indication: NASAL DISORDER
     Route: 045
     Dates: start: 20050101
  3. CHLORHEXIDINE GLUCONATE [Suspect]
     Indication: DRUG USE FOR UNKNOWN INDICATION
     Route: 048
     Dates: start: 20050701
  4. TOPROL-XL [Concomitant]
  5. LISINOPRIL [Concomitant]
  6. SYNTHROID [Concomitant]
  7. WELLBUTRIN [Concomitant]
  8. XANAX [Concomitant]
  9. DIAZEPAM [Concomitant]

REACTIONS (7)
  - ANAPHYLACTIC REACTION [None]
  - GLOSSODYNIA [None]
  - IRRITABILITY [None]
  - NERVOUSNESS [None]
  - PRURITUS [None]
  - RASH [None]
  - SCAB [None]
